FAERS Safety Report 6467817-3 (Version None)
Quarter: 2009Q4

REPORT INFORMATION
  Report Type: 
  Country: None (occurrence: None)
  Receive Date: 20091202
  Receipt Date: 20091120
  Transmission Date: 20100525
  Serious: Yes (Hospitalization, Disabling)
  Sender: FDA-Public Use
  Company Number: GB-ELI_LILLY_AND_COMPANY-GB200910007415

PATIENT
  Sex: Male
  Weight: 64 kg

DRUGS (6)
  1. PEMETREXED [Suspect]
     Indication: NON-SMALL CELL LUNG CANCER
     Dosage: 875 MG, UNKNOWN
     Route: 042
     Dates: start: 20091020
  2. CISPLATIN [Suspect]
     Indication: NON-SMALL CELL LUNG CANCER
     Dosage: 130 MG, UNKNOWN
     Route: 042
     Dates: start: 20091020
  3. FOLIC ACID [Concomitant]
     Indication: PROPHYLAXIS
  4. OMEPRAZOLE [Concomitant]
     Indication: DYSPEPSIA
     Dates: start: 20090901
  5. METOCLOPRAMIDE [Concomitant]
     Indication: NAUSEA
     Dosage: UNK, UNK
     Dates: start: 20090901, end: 20091102
  6. ZOPICLONE [Concomitant]
     Indication: INSOMNIA
     Dates: start: 20090909

REACTIONS (1)
  - CEREBROVASCULAR ACCIDENT [None]
